FAERS Safety Report 12179505 (Version 2)
Quarter: 2016Q1

REPORT INFORMATION
  Report Type: Spontaneous
  Country: IT (occurrence: IT)
  Receive Date: 20160315
  Receipt Date: 20160318
  Transmission Date: 20160526
  Serious: Yes (Other)
  Sender: FDA-Public Use
  Company Number: IT-PFIZER INC-2016151433

PATIENT
  Age: 67 Year
  Sex: Male
  Weight: 95 kg

DRUGS (2)
  1. TORA-DOL [Interacting]
     Active Substance: KETOROLAC TROMETHAMINE
     Indication: ABDOMINAL PAIN
     Dosage: 30 MG, (TOTAL)
     Route: 042
     Dates: start: 20160228, end: 20160228
  2. PANTOPRAZOLE [Suspect]
     Active Substance: PANTOPRAZOLE SODIUM
     Indication: PROPHYLAXIS
     Dosage: 40 MG, UNK (PER TOTAL)
     Route: 042
     Dates: start: 20160228, end: 20160228

REACTIONS (3)
  - Papule [Recovered/Resolved]
  - Rash erythematous [Recovered/Resolved]
  - Drug interaction [Unknown]

NARRATIVE: CASE EVENT DATE: 20160229
